FAERS Safety Report 4846473-1 (Version None)
Quarter: 2005Q4

REPORT INFORMATION
  Report Type: 
  Country: None (occurrence: None)
  Receive Date: 20051202
  Receipt Date: 20051118
  Transmission Date: 20060501
  Serious: Yes (Hospitalization, Other)
  Sender: FDA-Public Use
  Company Number: KII-2005-0019814

PATIENT
  Age: 23 Year
  Sex: Male

DRUGS (4)
  1. OXYCONTIN [Suspect]
  2. METHADONE HCL [Suspect]
  3. TETRAHYDROCANNABINOL (TETRAHYDROCANNABINOL) [Suspect]
     Indication: INTENTIONAL DRUG MISUSE
  4. COCAINE(COCAINE) [Suspect]
     Indication: INTENTIONAL DRUG MISUSE

REACTIONS (19)
  - AGITATION [None]
  - BLOOD GLUCOSE ABNORMAL [None]
  - BODY TEMPERATURE INCREASED [None]
  - COMA [None]
  - DEHYDRATION [None]
  - HEPATIC ENZYME INCREASED [None]
  - HYPERHIDROSIS [None]
  - LIVER FUNCTION TEST ABNORMAL [None]
  - MYDRIASIS [None]
  - OVERDOSE [None]
  - PNEUMONIA [None]
  - POLYSUBSTANCE ABUSE [None]
  - PUPILLARY REFLEX IMPAIRED [None]
  - RESPIRATORY RATE INCREASED [None]
  - RHONCHI [None]
  - TACHYCARDIA [None]
  - TROPONIN INCREASED [None]
  - WHEEZING [None]
  - WHITE BLOOD CELL COUNT ABNORMAL [None]
